FAERS Safety Report 5664646-5 (Version None)
Quarter: 2008Q1

REPORT INFORMATION
  Report Type: 
  Country: None (occurrence: None)
  Receive Date: 20080314
  Receipt Date: 20080305
  Transmission Date: 20080703
  Serious: Yes (Hospitalization, Other)
  Sender: FDA-Public Use
  Company Number: US-MERCK-0706USA00844

PATIENT
  Age: 75 Year
  Sex: Female

DRUGS (1)
  1. FOSAMAX [Suspect]
     Indication: OSTEOPOROSIS
     Route: 048
     Dates: start: 20050821

REACTIONS (14)
  - BRONCHITIS [None]
  - CHEST PAIN [None]
  - CONJUNCTIVITIS [None]
  - DIARRHOEA [None]
  - DYSPHONIA [None]
  - LUMBAR RADICULOPATHY [None]
  - MUSCULOSKELETAL DISCOMFORT [None]
  - NEURALGIA [None]
  - NEURITIS [None]
  - OEDEMA PERIPHERAL [None]
  - OSTEOMYELITIS [None]
  - RADICULITIS [None]
  - RESORPTION BONE INCREASED [None]
  - SYNCOPE [None]
